FAERS Safety Report 20832752 (Version 4)
Quarter: 2022Q4

REPORT INFORMATION
  Report Type: Spontaneous
  Country: CA (occurrence: CA)
  Receive Date: 20220516
  Receipt Date: 20221027
  Transmission Date: 20230112
  Serious: Yes (Other)
  Sender: FDA-Public Use
  Company Number: CA-CELLTRION INC.-2022CA001189

PATIENT

DRUGS (16)
  1. INFLECTRA [Suspect]
     Active Substance: INFLIXIMAB-DYYB
     Indication: Crohn^s disease
     Dosage: 400 MG Q 0, 2, 6 WEEKS, THEN EVERY 8 WEEKS
     Route: 042
     Dates: start: 20190213
  2. INFLECTRA [Suspect]
     Active Substance: INFLIXIMAB-DYYB
     Dosage: 400 MG Q 0, 2, 6 WEEKS, THEN EVERY 8 WEEKS
     Route: 042
     Dates: start: 20211027
  3. INFLECTRA [Suspect]
     Active Substance: INFLIXIMAB-DYYB
     Dosage: 400 MG Q 0, 2, 6 WEEKS, THEN EVERY 8 WEEKS
     Route: 042
     Dates: start: 20220104
  4. INFLECTRA [Suspect]
     Active Substance: INFLIXIMAB-DYYB
     Dosage: 400 MG Q 0, 2, 6 WEEKS, THEN EVERY 8 WEEKS
     Route: 042
     Dates: start: 20220429
  5. INFLECTRA [Suspect]
     Active Substance: INFLIXIMAB-DYYB
     Dosage: 400 MG Q 0, 2, 6 WEEKS, THEN EVERY 8 WEEKS
     Route: 042
     Dates: start: 20220822
  6. INFLECTRA [Suspect]
     Active Substance: INFLIXIMAB-DYYB
     Dosage: 400 MG Q 0, 2, 6 WEEKS, THEN EVERY 8 WEEKS
     Route: 042
     Dates: start: 20221017
  7. CHOLECALCIFEROL [Concomitant]
     Active Substance: CHOLECALCIFEROL
     Dosage: UNK
  8. CHOLECALCIFEROL [Concomitant]
     Active Substance: CHOLECALCIFEROL
     Dosage: 1 DF, DOSAGE UNKNOWN
     Route: 065
  9. FERAMAX [Concomitant]
     Active Substance: IRON\POLYSACCHARIDES
     Dosage: UNK
  10. FERAMAX [Concomitant]
     Active Substance: IRON\POLYSACCHARIDES
     Dosage: 1 DF, DOSAGE UNKNOWN
     Route: 065
  11. IMURAN [Concomitant]
     Active Substance: AZATHIOPRINE
     Dosage: UNK
  12. IMURAN [Concomitant]
     Active Substance: AZATHIOPRINE
     Dosage: 150 MG
     Route: 065
  13. SYNTHROID [Concomitant]
     Active Substance: LEVOTHYROXINE SODIUM
     Dosage: UNK
  14. SYNTHROID [Concomitant]
     Active Substance: LEVOTHYROXINE SODIUM
     Dosage: 1 DF, DOSAGE UNKNOWN
     Route: 065
  15. ASCORBIC ACID\ERGOCALCIFEROL\NIACINAMIDE\RETINOL\RIBOFLAVIN\THIAMINE [Concomitant]
     Active Substance: ASCORBIC ACID\ERGOCALCIFEROL\NIACINAMIDE\RETINOL\RIBOFLAVIN\THIAMINE
     Dosage: UNK
  16. ASCORBIC ACID\ERGOCALCIFEROL\NIACINAMIDE\RETINOL\RIBOFLAVIN\THIAMINE [Concomitant]
     Active Substance: ASCORBIC ACID\ERGOCALCIFEROL\NIACINAMIDE\RETINOL\RIBOFLAVIN\THIAMINE
     Dosage: 1 DF, DOSAGE UNKNOWN
     Route: 065

REACTIONS (5)
  - Thyroid disorder [Recovering/Resolving]
  - Tonsillitis [Recovered/Resolved]
  - Inappropriate schedule of product administration [Unknown]
  - Off label use [Unknown]
  - Intentional product use issue [Unknown]

NARRATIVE: CASE EVENT DATE: 20220101
